FAERS Safety Report 22533915 (Version 2)
Quarter: 2023Q2

REPORT INFORMATION
  Report Type: Other
  Country: US (occurrence: None)
  Receive Date: 20230608
  Receipt Date: 20230626
  Transmission Date: 20230722
  Serious: Yes (Hospitalization)
  Sender: FDA-Public Use
  Company Number: US-ROCHE-3361574

PATIENT
  Age: 69 Year
  Sex: Female

DRUGS (2)
  1. ERIVEDGE [Suspect]
     Active Substance: VISMODEGIB
     Indication: Basal cell carcinoma
     Dosage: 1 CAPSULE BY MOUTH DAILY FOR 1 MONTH, THEN OFF 1 MONTH, REPEAT
     Route: 048
  2. MELOXICAM [Concomitant]
     Active Substance: MELOXICAM

REACTIONS (4)
  - Loss of consciousness [Unknown]
  - Blood sodium decreased [Unknown]
  - Blood electrolytes decreased [Unknown]
  - Oxygen saturation decreased [Unknown]
